FAERS Safety Report 5781906-8 (Version None)
Quarter: 2008Q2

REPORT INFORMATION
  Report Type: 
  Country: None (occurrence: None)
  Receive Date: 20080623
  Receipt Date: 20080616
  Transmission Date: 20081010
  Serious: Yes (Other)
  Sender: FDA-Public Use
  Company Number: B0360071A

PATIENT
  Age: 32 Year
  Sex: Female

DRUGS (11)
  1. PAROXETINE HCL [Suspect]
     Dates: start: 20011212
  2. EFFEXOR [Concomitant]
     Dates: start: 20030218
  3. CLONAZEPAM [Concomitant]
     Dates: start: 20030314
  4. DIAZEPAM [Concomitant]
     Dates: start: 20021219
  5. GAMANIL [Concomitant]
     Dates: start: 20021122
  6. TEMAZEPAM [Concomitant]
  7. ZOPICLONE [Concomitant]
  8. TRIMIPRAMINE MALEATE [Concomitant]
  9. FLUOXETINE [Concomitant]
  10. PROPRANOLOL [Concomitant]
     Indication: MIGRAINE
  11. LAMOTRIGINE [Concomitant]
     Indication: EPILEPSY

REACTIONS (19)
  - AGITATION [None]
  - ANXIETY [None]
  - ASTHENIA [None]
  - CONFUSIONAL STATE [None]
  - DECREASED APPETITE [None]
  - DISTURBANCE IN ATTENTION [None]
  - DIZZINESS [None]
  - DRUG WITHDRAWAL SYNDROME [None]
  - INFLUENZA [None]
  - MEMORY IMPAIRMENT [None]
  - MOOD SWINGS [None]
  - NAUSEA [None]
  - NIGHTMARE [None]
  - PANIC ATTACK [None]
  - SLEEP DISORDER [None]
  - SUICIDAL IDEATION [None]
  - VERTIGO [None]
  - VOMITING [None]
  - WITHDRAWAL SYNDROME [None]
